FAERS Safety Report 15434983 (Version 1)
Quarter: 2018Q3

REPORT INFORMATION
  Report Type: Spontaneous
  Country: US (occurrence: US)
  Receive Date: 20180924
  Receipt Date: 20180924
  Transmission Date: 20181010
  Serious: Yes (Hospitalization)
  Sender: FDA-Public Use
  Company Number: None

PATIENT
  Age: 30 Year
  Sex: Male
  Weight: 68.9 kg

DRUGS (1)
  1. IOPAMIDOL [Suspect]
     Active Substance: IOPAMIDOL
     Dates: start: 20180923, end: 20180923

REACTIONS (3)
  - Pruritus [None]
  - Dyspnoea [None]
  - Cardio-respiratory arrest [None]

NARRATIVE: CASE EVENT DATE: 20180923
